FAERS Safety Report 13839532 (Version 1)
Quarter: 2017Q3

REPORT INFORMATION
  Report Type: Spontaneous
  Country: US (occurrence: US)
  Receive Date: 20170805
  Receipt Date: 20170805
  Transmission Date: 20171127
  Serious: Yes (Hospitalization)
  Sender: FDA-Public Use
  Company Number: None

PATIENT
  Age: 76 Year
  Sex: Male

DRUGS (22)
  1. ABACAVIR. [Concomitant]
     Active Substance: ABACAVIR
  2. ZINC OXIDE. [Concomitant]
     Active Substance: ZINC OXIDE
  3. ATORVASTATIN [Concomitant]
     Active Substance: ATORVASTATIN
  4. CARVEDILOL. [Concomitant]
     Active Substance: CARVEDILOL
  5. TEMAZEPAM. [Concomitant]
     Active Substance: TEMAZEPAM
  6. AMLODIPINE [Concomitant]
     Active Substance: AMLODIPINE BESYLATE
  7. HYDRALAZINE [Concomitant]
     Active Substance: HYDRALAZINE HYDROCHLORIDE
  8. LAMIVUDINE. [Concomitant]
     Active Substance: LAMIVUDINE
  9. ENOXAPARIN [Suspect]
     Active Substance: ENOXAPARIN
     Indication: PROPHYLAXIS
     Route: 058
     Dates: start: 20161108, end: 20161114
  10. ALBUTEROL. [Concomitant]
     Active Substance: ALBUTEROL
  11. IPRATROPIUM [Concomitant]
     Active Substance: IPRATROPIUM
  12. LANSOPRAZOLE. [Concomitant]
     Active Substance: LANSOPRAZOLE
  13. ACETAMINOPHEN. [Concomitant]
     Active Substance: ACETAMINOPHEN
  14. FOLIC ACID. [Concomitant]
     Active Substance: FOLIC ACID
  15. CLOPIDOGREL [Concomitant]
     Active Substance: CLOPIDOGREL BISULFATE
  16. HYDROMORPHONE [Concomitant]
     Active Substance: HYDROMORPHONE
  17. INSULIN ASPART [Concomitant]
     Active Substance: INSULIN ASPART
  18. LOPERAMIDE [Concomitant]
     Active Substance: LOPERAMIDE
  19. ASPIRIN. [Concomitant]
     Active Substance: ASPIRIN
  20. BUSPIRONE [Concomitant]
     Active Substance: BUSPIRONE HYDROCHLORIDE
  21. CHOLECALCIFEROL [Concomitant]
     Active Substance: CHOLECALCIFEROL
  22. FERROUS SULFATE. [Concomitant]
     Active Substance: FERROUS SULFATE

REACTIONS (5)
  - Haemothorax [None]
  - Pneumothorax [None]
  - Haemoglobin decreased [None]
  - Respiratory distress [None]
  - Hypotension [None]

NARRATIVE: CASE EVENT DATE: 20161118
